FAERS Safety Report 14814476 (Version 1)
Quarter: 2018Q2

REPORT INFORMATION
  Report Type: Spontaneous
  Country: US (occurrence: US)
  Receive Date: 20180426
  Receipt Date: 20180426
  Transmission Date: 20180711
  Serious: Yes (Other)
  Sender: FDA-Public Use
  Company Number: US-DRREDDYS-USA/USA/18/0098025

PATIENT
  Age: 14 Year
  Sex: Female

DRUGS (2)
  1. TACROLIMUS. [Suspect]
     Active Substance: TACROLIMUS
     Indication: IMMUNOSUPPRESSION
     Route: 065
  2. MYCOPHENOLATE MOFETIL. [Suspect]
     Active Substance: MYCOPHENOLATE MOFETIL
     Indication: IMMUNOSUPPRESSION
     Route: 065

REACTIONS (9)
  - Transplant rejection [Unknown]
  - Adenovirus infection [Unknown]
  - Pyelonephritis [Unknown]
  - BK virus infection [Unknown]
  - Haemophilus infection [Unknown]
  - Diarrhoea [Unknown]
  - Gastroenteritis adenovirus [Unknown]
  - Pneumonia [Unknown]
  - Giardiasis [Unknown]
